FAERS Safety Report 5685842-7 (Version None)
Quarter: 2008Q1

REPORT INFORMATION
  Report Type: 
  Country: None (occurrence: None)
  Receive Date: 20080328
  Receipt Date: 20070911
  Transmission Date: 20080703
  Serious: No
  Sender: FDA-Public Use
  Company Number: US-BAYER-US-2007-034035

PATIENT
  Age: 16 Year
  Sex: Female

DRUGS (1)
  1. MIRENA [Suspect]
     Indication: CONTRACEPTION
     Route: 015
     Dates: start: 20060717

REACTIONS (5)
  - AMENORRHOEA [None]
  - FATIGUE [None]
  - MALAISE [None]
  - MOOD SWINGS [None]
  - VAGINAL PAIN [None]
